FAERS Safety Report 9972317 (Version 1)
Quarter: 2014Q1

REPORT INFORMATION
  Report Type: Spontaneous
  Country: US (occurrence: None)
  Receive Date: 20140305
  Receipt Date: 20140305
  Transmission Date: 20141002
  Serious: Yes (Hospitalization)
  Sender: FDA-Public Use
  Company Number: None

PATIENT
  Age: 65 Year
  Sex: Male

DRUGS (1)
  1. FINASTERIDE 5 MG AUROBINDO [Suspect]
     Indication: PROSTATIC DISORDER
     Dosage: 1 DAILY, QD, ORAL
     Route: 048
     Dates: start: 20140108, end: 20140114

REACTIONS (1)
  - Convulsion [None]
